APPROVED DRUG PRODUCT: PRAMIPEXOLE DIHYDROCHLORIDE
Active Ingredient: PRAMIPEXOLE DIHYDROCHLORIDE
Strength: 0.75MG
Dosage Form/Route: TABLET;ORAL
Application: A090190 | Product #006
Applicant: SANDOZ INC
Approved: Oct 8, 2010 | RLD: No | RS: No | Type: DISCN